FAERS Safety Report 8061565-4 (Version None)
Quarter: 2012Q1

REPORT INFORMATION
  Report Type: 
  Country: None (occurrence: None)
  Receive Date: 20120121
  Receipt Date: 20120112
  Transmission Date: 20120608
  Serious: Yes (Hospitalization, Other)
  Sender: FDA-Public Use
  Company Number: DE-TEVA-317716GER

PATIENT
  Sex: Female
  Weight: 93 kg

DRUGS (5)
  1. CARBOPLATIN [Suspect]
     Indication: BREAST CANCER
     Route: 042
     Dates: start: 20111012
  2. DOXORUBICIN HCL [Suspect]
     Indication: BREAST CANCER
     Route: 042
     Dates: start: 20111012
  3. PACLITAXEL [Suspect]
     Indication: BREAST CANCER
     Route: 042
     Dates: start: 20111012
  4. BEVACIZUMAB [Suspect]
     Dosage: D1 Q22
     Route: 042
     Dates: start: 20111012
  5. MICARDIS [Concomitant]

REACTIONS (3)
  - VOMITING [None]
  - SYNCOPE [None]
  - FATIGUE [None]
